FAERS Safety Report 11136866 (Version 1)
Quarter: 2015Q2

REPORT INFORMATION
  Report Type: Spontaneous
  Country: US (occurrence: US)
  Receive Date: 20150526
  Receipt Date: 20150526
  Transmission Date: 20150821
  Serious: Yes (Hospitalization)
  Sender: FDA-Public Use
  Company Number: US-BAYER-2015-236310

PATIENT

DRUGS (2)
  1. BAYER GENUINE ASPIRIN [Suspect]
     Active Substance: ASPIRIN
  2. ALKA-SELTZER LEMON LIME [Suspect]
     Active Substance: ANHYDROUS CITRIC ACID\ASPIRIN\SODIUM BICARBONATE

REACTIONS (3)
  - Drug hypersensitivity [Unknown]
  - Product use issue [Unknown]
  - Coma [Unknown]
